FAERS Safety Report 8544776-0 (Version None)
Quarter: 2012Q3

REPORT INFORMATION
  Report Type: 
  Country: None (occurrence: None)
  Receive Date: 20120727
  Receipt Date: 20120718
  Transmission Date: 20120928
  Serious: Yes (Death, Hospitalization, Other)
  Sender: FDA-Public Use
  Company Number: JP-SANOFI-AVENTIS-2009SA000365

PATIENT
  Age: 76 Year
  Sex: Male
  Weight: 63 kg

DRUGS (15)
  1. OXYCONTIN [Concomitant]
     Route: 048
  2. DILTIAZEM HCL [Concomitant]
     Route: 048
  3. ISOSORBIDE MONONITRATE [Concomitant]
     Route: 048
  4. TAXOTERE [Suspect]
     Route: 042
  5. MAGNESIUM OXIDE [Concomitant]
     Route: 048
  6. TAXOTERE [Suspect]
     Indication: PROSTATE CANCER
     Route: 042
     Dates: start: 20090501, end: 20090501
  7. UROLOGICALS [Concomitant]
     Route: 048
  8. UFT [Concomitant]
     Route: 048
  9. LANSOPRAZOLE [Concomitant]
     Route: 048
  10. PRAVASTATIN [Concomitant]
     Route: 048
  11. TAXOTERE [Suspect]
     Route: 042
     Dates: start: 20090902, end: 20090902
  12. DOGMATYL [Concomitant]
     Route: 048
  13. LOXOPROFEN [Concomitant]
     Route: 048
  14. ASPIRIN [Concomitant]
     Route: 048
  15. TAXOTERE [Suspect]
     Route: 042
     Dates: start: 20090731, end: 20090731

REACTIONS (7)
  - BONE MARROW FAILURE [None]
  - DECREASED APPETITE [None]
  - FATIGUE [None]
  - RESPIRATORY FAILURE [None]
  - INTERSTITIAL LUNG DISEASE [None]
  - PNEUMONIA [None]
  - NEUTROPHIL COUNT DECREASED [None]
